FAERS Safety Report 19652545 (Version 4)
Quarter: 2023Q1

REPORT INFORMATION
  Report Type: Report from Study
  Country: US (occurrence: US)
  Receive Date: 20210803
  Receipt Date: 20230214
  Transmission Date: 20230417
  Serious: No
  Sender: FDA-Public Use
  Company Number: US-KYOWAKIRIN-2021BKK013191

PATIENT

DRUGS (3)
  1. CRYSVITA [Suspect]
     Active Substance: BUROSUMAB-TWZA
     Indication: Hereditary hypophosphataemic rickets
     Dosage: 90 MG, 1X/4 WEEKS (EVERY 4 WEEKS)
     Route: 058
     Dates: start: 202106
  2. CRYSVITA [Suspect]
     Active Substance: BUROSUMAB-TWZA
     Dosage: 90 MG, 1X/4 WEEKS (EVERY 4 WEEKS)
     Route: 058
     Dates: start: 20220408
  3. CRYSVITA [Suspect]
     Active Substance: BUROSUMAB-TWZA
     Dosage: 30 MG, 1X/4 WEEKS
     Route: 058

REACTIONS (9)
  - Pain [Unknown]
  - Pain [Unknown]
  - Tooth fracture [Unknown]
  - Tooth hypoplasia [Unknown]
  - Blood phosphorus decreased [Unknown]
  - Fall [Unknown]
  - Urinary incontinence [Unknown]
  - Food poisoning [Unknown]
  - Product dose omission issue [Unknown]

NARRATIVE: CASE EVENT DATE: 20220123
